FAERS Safety Report 6476234-1 (Version None)
Quarter: 2009Q4

REPORT INFORMATION
  Report Type: 
  Country: None (occurrence: None)
  Receive Date: 20091206
  Receipt Date: 20090116
  Transmission Date: 20100525
  Serious: No
  Sender: FDA-Public Use
  Company Number: US-AMGEN-KDL328826

PATIENT
  Sex: Female

DRUGS (1)
  1. ENBREL [Suspect]
     Indication: PSORIASIS
     Route: 058
     Dates: start: 20080303

REACTIONS (6)
  - INFLUENZA LIKE ILLNESS [None]
  - PAIN [None]
  - PRODUCTIVE COUGH [None]
  - PYREXIA [None]
  - RHINORRHOEA [None]
  - UPPER RESPIRATORY TRACT CONGESTION [None]
